FAERS Safety Report 20383061 (Version 1)
Quarter: 2022Q1

REPORT INFORMATION
  Report Type: Spontaneous
  Country: US (occurrence: None)
  Receive Date: 20220126
  Receipt Date: 20220126
  Transmission Date: 20220423
  Serious: No
  Sender: FDA-Public Use
  Company Number: None

PATIENT

DRUGS (2)
  1. VITAMIN D3 [Suspect]
     Active Substance: CHOLECALCIFEROL
  2. VITAMIN D2 [Suspect]
     Active Substance: ERGOCALCIFEROL

REACTIONS (2)
  - Product dispensing error [None]
  - Wrong product administered [None]
